FAERS Safety Report 4315002-3 (Version None)
Quarter: 2004Q1

REPORT INFORMATION
  Report Type: 
  Country: None (occurrence: None)
  Receive Date: 20040309
  Receipt Date: 20040226
  Transmission Date: 20041129
  Serious: Yes (Hospitalization, Other)
  Sender: FDA-Public Use
  Company Number: 230010M03AUS

PATIENT
  Sex: Female
  Weight: 60 kg

DRUGS (2)
  1. REBIF [Suspect]
     Dosage: SUBCUTANEOUS
     Route: 058
  2. CITALOPRAM HYROBROMIDE [Concomitant]

REACTIONS (2)
  - HEPATIC FUNCTION ABNORMAL [None]
  - LETHARGY [None]
